FAERS Safety Report 18243009 (Version 2)
Quarter: 2020Q3

REPORT INFORMATION
  Report Type: Spontaneous
  Country: US (occurrence: US)
  Receive Date: 20200908
  Receipt Date: 20200921
  Transmission Date: 20201103
  Serious: No
  Sender: FDA-Public Use
  Company Number: US-PFIZER INC-2020345024

PATIENT
  Age: 62 Year
  Sex: Female
  Weight: 79.38 kg

DRUGS (13)
  1. MONTELUKAST [Concomitant]
     Active Substance: MONTELUKAST SODIUM
     Indication: HYPERSENSITIVITY
     Dosage: 10MG TABLETS BY MOUTH ONCE DAILY AT NIGHT
     Route: 048
  2. LEVOCETIRIZINE DIHYDROCHLORIDE. [Concomitant]
     Active Substance: LEVOCETIRIZINE DIHYDROCHLORIDE
     Indication: HYPERSENSITIVITY
     Dosage: 5MG TABLET BY MOUTH ONCE DAILY
     Route: 048
  3. CELECOXIB. [Concomitant]
     Active Substance: CELECOXIB
     Indication: ARTHRITIS
     Dosage: 200MG CAPSULES BY MOUTH ONCE DAILY
     Route: 048
  4. PREMARIN [Suspect]
     Active Substance: ESTROGENS, CONJUGATED
     Indication: HORMONE REPLACEMENT THERAPY
     Dosage: 0.625MG TABLETS BY MOUTH ONCE DAILY
     Route: 048
  5. OLMESARTAN HCTZ [Concomitant]
     Active Substance: HYDROCHLOROTHIAZIDE\OLMESARTAN MEDOXOMIL
     Indication: HYPERTENSION
     Dosage: OLMESARTAN HCTZ 40?12.5MG TABLET BY MOUTH ONCE DAILY, IN THE MORNING
     Route: 048
  6. ATORVASTATIN [Concomitant]
     Active Substance: ATORVASTATIN
     Indication: BLOOD CHOLESTEROL INCREASED
     Dosage: 10MG TABLET BY MOUTH ONCE DAILY AT BEDTIME
     Route: 048
  7. CENTRUM SILVER WOMEN 50+ [Concomitant]
     Active Substance: MINERALS\VITAMINS
     Dosage: ONE TABLET BY MOUTH DAILY
     Route: 048
  8. CARTIA XT [Concomitant]
     Active Substance: DILTIAZEM HYDROCHLORIDE
     Indication: HYPERTENSION
     Dosage: 120/24HR CAPSULES BY MOUTH ONCE DAILY IN THE EVENING
     Route: 048
     Dates: start: 202001
  9. AREDS [Concomitant]
     Active Substance: MINERALS\VITAMINS
     Indication: SUPPLEMENTATION THERAPY
     Dosage: TWO TABLETS,SPLITS THAT INTO ONE IN THE MORNING AND ONE AT NIGHT
     Route: 048
  10. OMEPRAZOLE. [Concomitant]
     Active Substance: OMEPRAZOLE
     Indication: GASTROOESOPHAGEAL REFLUX DISEASE
     Dosage: 40 MG, 1X/DAY
     Route: 048
  11. PROLIA [Concomitant]
     Active Substance: DENOSUMAB
     Indication: OSTEOPOROSIS
     Dosage: 60MG BY INJECTION EVERY 6 MONTHS
  12. VITAMIN D [COLECALCIFEROL] [Concomitant]
     Active Substance: CHOLECALCIFEROL
     Dosage: 10,0000 IU CAPSULE BY MOUTH ONCE DAILY
     Route: 048
  13. CALCIUM VITAMIN D [Concomitant]
     Active Substance: CALCIUM\VITAMIN D
     Dosage: 1200MG TWO TABLETS BY MOUTH ONCE DAILY
     Route: 048

REACTIONS (1)
  - Therapeutic product effect incomplete [Unknown]
